FAERS Safety Report 8312413-6 (Version None)
Quarter: 2012Q2

REPORT INFORMATION
  Report Type: 
  Country: None (occurrence: None)
  Receive Date: 20120425
  Receipt Date: 20120416
  Transmission Date: 20120825
  Serious: Yes (Hospitalization, Other)
  Sender: FDA-Public Use
  Company Number: US-ELI_LILLY_AND_COMPANY-US201107006156

PATIENT
  Sex: Female

DRUGS (11)
  1. ASPIRIN [Concomitant]
     Dosage: UNK, QD
     Route: 065
  2. VITAMIN TAB [Concomitant]
     Dosage: UNK, QD
     Route: 065
  3. TYLENOL (CAPLET) [Concomitant]
     Dosage: UNK, QD
     Route: 065
  4. FORTEO [Suspect]
     Dosage: 20 UG, QD
     Route: 065
  5. LORATADINE [Concomitant]
     Dosage: UNK, UNKNOWN
     Route: 065
  6. OSTEO BI-FLEX [Concomitant]
     Dosage: UNK, QD
     Route: 065
  7. TRAMADOL HYDROCHLORIDE [Concomitant]
     Dosage: UNK, QD
     Route: 065
  8. FORTEO [Suspect]
     Indication: OSTEOPOROSIS
     Dosage: 20 UG, QD
     Route: 065
     Dates: start: 20110501
  9. DIOVAN [Concomitant]
     Dosage: UNK, UNKNOWN
     Route: 065
  10. FORTEO [Suspect]
     Dosage: 20 UG, QD
  11. ANTIGLAUCOMA PREPARATIONS AND MIOTICS [Concomitant]
     Indication: GLAUCOMA
     Dosage: UNK, QD
     Route: 065

REACTIONS (12)
  - MOBILITY DECREASED [None]
  - CONTUSION [None]
  - INJECTION SITE PAIN [None]
  - FEELING ABNORMAL [None]
  - PAIN IN EXTREMITY [None]
  - FALL [None]
  - MENTAL IMPAIRMENT [None]
  - WRIST FRACTURE [None]
  - GAIT DISTURBANCE [None]
  - BACK PAIN [None]
  - HIP FRACTURE [None]
  - VISUAL ACUITY REDUCED [None]
